FAERS Safety Report 5565973-2 (Version None)
Quarter: 2007Q4

REPORT INFORMATION
  Report Type: 
  Country: None (occurrence: None)
  Receive Date: 20071219
  Receipt Date: 20071212
  Transmission Date: 20080405
  Serious: Yes (Other)
  Sender: FDA-Public Use
  Company Number: ES-BAYER-200718135GPV

PATIENT

DRUGS (1)
  1. ULTRAVIST 370 MG I/ML (IOPROMIDE) [Suspect]
     Indication: ARTERIOGRAM CORONARY
     Dates: start: 20071101, end: 20071101

REACTIONS (1)
  - BRADYCARDIA [None]
